FAERS Safety Report 10800131 (Version 1)
Quarter: 2015Q1

REPORT INFORMATION
  Report Type: Report from Study
  Country: US (occurrence: US)
  Receive Date: 20150216
  Receipt Date: 20150216
  Transmission Date: 20150721
  Serious: No
  Sender: FDA-Public Use
  Company Number: US-ABBVIE-14K-163-1244629-00

PATIENT
  Age: 54 Year
  Sex: Female

DRUGS (9)
  1. ZOLOFT [Concomitant]
     Active Substance: SERTRALINE HYDROCHLORIDE
     Indication: ANXIETY
  2. BUSPIRONE [Concomitant]
     Active Substance: BUSPIRONE HYDROCHLORIDE
     Indication: ANXIETY
  3. BUSPIRONE [Concomitant]
     Active Substance: BUSPIRONE HYDROCHLORIDE
     Indication: DEPRESSION
  4. HUMIRA [Suspect]
     Active Substance: ADALIMUMAB
     Dates: start: 20140527
  5. ABILIFY [Concomitant]
     Active Substance: ARIPIPRAZOLE
     Indication: ANXIETY
  6. ABILIFY [Concomitant]
     Active Substance: ARIPIPRAZOLE
     Indication: DEPRESSION
  7. HUMIRA [Suspect]
     Active Substance: ADALIMUMAB
     Indication: CROHN^S DISEASE
     Dates: start: 20140429, end: 20140429
  8. ZOLOFT [Concomitant]
     Active Substance: SERTRALINE HYDROCHLORIDE
     Indication: DEPRESSION
  9. HUMIRA [Suspect]
     Active Substance: ADALIMUMAB
     Dates: start: 20140513, end: 20140513

REACTIONS (7)
  - Gait disturbance [Unknown]
  - Paraesthesia [Unknown]
  - Pain in extremity [Unknown]
  - Fatigue [Unknown]
  - Pain [Unknown]
  - Musculoskeletal pain [Not Recovered/Not Resolved]
  - Back pain [Not Recovered/Not Resolved]

NARRATIVE: CASE EVENT DATE: 201405
